FAERS Safety Report 4483412-X (Version None)
Quarter: 2004Q4

REPORT INFORMATION
  Report Type: 
  Country: None (occurrence: None)
  Receive Date: 20041020
  Receipt Date: 20041005
  Transmission Date: 20050328
  Serious: Yes (Hospitalization, Other)
  Sender: FDA-Public Use
  Company Number: USA041080298

PATIENT
  Sex: Male

DRUGS (3)
  1. PROZAC [Suspect]
     Indication: DEPRESSION
     Dosage: 960 MG
  2. WELLBUTRIN [Concomitant]
  3. DEPAKOTE [Concomitant]

REACTIONS (5)
  - AGITATION [None]
  - ASPIRATION [None]
  - CONVULSION [None]
  - DELIRIUM [None]
  - SUICIDE ATTEMPT [None]
